FAERS Safety Report 9783471 (Version 3)
Quarter: 2014Q4

REPORT INFORMATION
  Report Type: Report from Study
  Country: DE (occurrence: DE)
  Receive Date: 20131226
  Receipt Date: 20141026
  Transmission Date: 20150529
  Serious: Yes (Hospitalization)
  Sender: FDA-Public Use
  Company Number: DE-009507513-1001USA00494

PATIENT
  Age: 66 Year
  Sex: Male
  Weight: 77.2 kg

DRUGS (7)
  1. ASPIRIN. [Concomitant]
     Active Substance: ASPIRIN
     Dosage: TOTAL DAILY DOSE: 100 MG
     Route: 048
     Dates: start: 20090908
  2. TILIDIN [Concomitant]
     Active Substance: NALOXONE HYDROCHLORIDE\TILIDINE HYDROCHLORIDE
     Dosage: TOTAL DAILY DOSE: 4X20 DROPS
     Route: 048
     Dates: start: 20110825
  3. METOPROLOL [Concomitant]
     Active Substance: METOPROLOL
     Dosage: TOTAL DAILY DOSE: 95 MG
     Route: 048
     Dates: start: 20090908
  4. RAMIPRIL. [Concomitant]
     Active Substance: RAMIPRIL
     Dosage: TOTAL DAILY DOSE: 10 MG
     Route: 048
     Dates: start: 20110301
  5. PLAVIX [Concomitant]
     Active Substance: CLOPIDOGREL BISULFATE
     Dosage: 75 MG, QD
     Route: 048
     Dates: start: 20090908
  6. SIMVASTATIN. [Suspect]
     Active Substance: SIMVASTATIN
     Indication: ACUTE CORONARY SYNDROME
     Dosage: UNK
     Route: 048
     Dates: start: 20090908
  7. NEXIUM [Concomitant]
     Active Substance: ESOMEPRAZOLE MAGNESIUM
     Dosage: TOTAL DAILY DOSE: 40 MG
     Route: 048
     Dates: start: 20110825

REACTIONS (2)
  - Cholelithiasis [Recovered/Resolved]
  - Cholecystitis [Recovered/Resolved]

NARRATIVE: CASE EVENT DATE: 20091214
